FAERS Safety Report 6136406-2 (Version None)
Quarter: 2009Q1

REPORT INFORMATION
  Report Type: 
  Country: None (occurrence: None)
  Receive Date: 20090325
  Receipt Date: 20090316
  Transmission Date: 20090719
  Serious: No
  Sender: FDA-Public Use
  Company Number: 8044091

PATIENT

DRUGS (4)
  1. KEPPRA [Suspect]
  2. VALPROATE SODIUM [Concomitant]
  3. TRILEPTAL [Concomitant]
  4. TAXOTERE [Concomitant]

REACTIONS (1)
  - HAEMOGLOBIN DECREASED [None]
